FAERS Safety Report 14740957 (Version 2)
Quarter: 2018Q2

REPORT INFORMATION
  Report Type: Spontaneous
  Country: US (occurrence: US)
  Receive Date: 20180410
  Receipt Date: 20180427
  Transmission Date: 20180711
  Serious: Yes (Other)
  Sender: FDA-Public Use
  Company Number: US-JNJFOC-20180403785

PATIENT
  Age: 57 Year
  Sex: Female
  Weight: 54.43 kg

DRUGS (5)
  1. DEXAMETHASONE. [Concomitant]
     Active Substance: DEXAMETHASONE
     Indication: INFLAMMATION
     Route: 048
     Dates: start: 20180322
  2. HERCEPTIN [Concomitant]
     Active Substance: TRASTUZUMAB
     Route: 042
  3. CODEINE [Concomitant]
     Active Substance: CODEINE
     Route: 065
  4. PERJETA [Concomitant]
     Active Substance: PERTUZUMAB
     Route: 042
  5. XARELTO [Suspect]
     Active Substance: RIVAROXABAN
     Indication: THROMBOSIS
     Route: 048
     Dates: start: 201604, end: 20180327

REACTIONS (6)
  - Cerebral haemorrhage [Recovered/Resolved]
  - Central nervous system lesion [Not Recovered/Not Resolved]
  - Rhinalgia [Recovered/Resolved]
  - Seizure [Not Recovered/Not Resolved]
  - Abnormal loss of weight [Not Recovered/Not Resolved]
  - Epistaxis [Recovered/Resolved]

NARRATIVE: CASE EVENT DATE: 2017
